FAERS Safety Report 19613838 (Version 2)
Quarter: 2021Q3

REPORT INFORMATION
  Report Type: Spontaneous
  Country: ES (occurrence: ES)
  Receive Date: 20210727
  Receipt Date: 20210730
  Transmission Date: 20211014
  Serious: Yes (Death, Hospitalization)
  Sender: FDA-Public Use
  Company Number: ES-CELGENEUS-ESP-20210704375

PATIENT
  Age: 83 Year
  Sex: Male
  Weight: 65.4 kg

DRUGS (10)
  1. AZACITIDINE. [Suspect]
     Active Substance: AZACITIDINE
     Indication: ACUTE MYELOID LEUKAEMIA
     Dosage: 126 MILLIGRAM
     Route: 058
     Dates: start: 20210708
  2. FUROSEMIDE. [Concomitant]
     Active Substance: FUROSEMIDE
     Indication: URINE OUTPUT INCREASED
     Route: 065
     Dates: start: 20210629, end: 20210717
  3. AMIODARONE [Concomitant]
     Active Substance: AMIODARONE
     Indication: ARRHYTHMIA SUPRAVENTRICULAR
     Route: 065
  4. VORICONAZOLE. [Concomitant]
     Active Substance: VORICONAZOLE
     Indication: PRODUCT USED FOR UNKNOWN INDICATION
     Route: 065
     Dates: start: 20210629, end: 20210717
  5. LEVOFLOXACIN. [Concomitant]
     Active Substance: LEVOFLOXACIN
     Indication: PRODUCT USED FOR UNKNOWN INDICATION
     Route: 065
     Dates: start: 20210629, end: 20210714
  6. OMEPRAZOLE. [Concomitant]
     Active Substance: OMEPRAZOLE
     Indication: ULCER
     Route: 065
     Dates: start: 20210629, end: 20210717
  7. MLN4924 [Suspect]
     Active Substance: PEVONEDISTAT
     Indication: ACUTE MYELOID LEUKAEMIA
     Dosage: 40.4 MILLIGRAM
     Route: 041
     Dates: start: 20210708
  8. METOCLOPRAMIDE HYDROCHLORIDE. [Concomitant]
     Active Substance: METOCLOPRAMIDE HYDROCHLORIDE
     Indication: NAUSEA
     Route: 065
     Dates: start: 20210608, end: 20210617
  9. ACICLOVIR [Concomitant]
     Active Substance: ACYCLOVIR
     Indication: PRODUCT USED FOR UNKNOWN INDICATION
     Route: 065
     Dates: start: 20210629, end: 20210717
  10. ALLOPURINOL. [Concomitant]
     Active Substance: ALLOPURINOL
     Indication: PROPHYLAXIS
     Route: 065
     Dates: start: 20210629, end: 20210716

REACTIONS (1)
  - Pyrexia [Fatal]

NARRATIVE: CASE EVENT DATE: 20210708
